FAERS Safety Report 20777870 (Version 1)
Quarter: 2022Q2

REPORT INFORMATION
  Report Type: Spontaneous
  Country: TR (occurrence: None)
  Receive Date: 20220503
  Receipt Date: 20220503
  Transmission Date: 20220721
  Serious: Yes (Life-Threatening, Hospitalization, Other)
  Sender: FDA-Public Use
  Company Number: TR-MICRO LABS LIMITED-ML2022-01777

PATIENT
  Age: 20 Year
  Sex: Female

DRUGS (1)
  1. VERAPAMIL HYDROCHLORIDE [Suspect]
     Active Substance: VERAPAMIL HYDROCHLORIDE
     Indication: Supraventricular tachycardia
     Dosage: 15 TABLETS OF EXTENDED RELEASE VERAPAMIL 120 MG (1800 MG) 20-30 MINUTES

REACTIONS (9)
  - Cyanosis [Unknown]
  - Peripheral coldness [Unknown]
  - Mental status changes [Unknown]
  - Non-cardiogenic pulmonary oedema [Unknown]
  - Acidosis [Unknown]
  - Cardiogenic shock [Unknown]
  - Atrioventricular block [Unknown]
  - Intentional product misuse [Unknown]
  - Overdose [Unknown]
